FAERS Safety Report 22656107 (Version 1)
Quarter: 2023Q2

REPORT INFORMATION
  Report Type: Spontaneous
  Country: IN (occurrence: IN)
  Receive Date: 20230629
  Receipt Date: 20230629
  Transmission Date: 20230722
  Serious: Yes (Other)
  Sender: FDA-Public Use
  Company Number: IN-FreseniusKabi-FK202309301

PATIENT
  Age: 70 Year
  Sex: Male
  Weight: 72.7 kg

DRUGS (1)
  1. CARBOPLATIN [Suspect]
     Active Substance: CARBOPLATIN
     Indication: Neoplasm malignant
     Route: 042

REACTIONS (2)
  - Cough [Recovering/Resolving]
  - Throat irritation [Recovering/Resolving]
